FAERS Safety Report 4963801-7 (Version None)
Quarter: 2006Q1

REPORT INFORMATION
  Report Type: 
  Country: None (occurrence: None)
  Receive Date: 20060330
  Receipt Date: 20060320
  Transmission Date: 20060701
  Serious: Yes (Hospitalization, Other)
  Sender: FDA-Public Use
  Company Number: 2006039322

PATIENT
  Age: 70 Year
  Sex: Male
  Weight: 69.4003 kg

DRUGS (6)
  1. LIPITOR [Suspect]
     Indication: ILL-DEFINED DISORDER
     Dosage: 40 MG (40 MG, 1 IN 1 D), ORAL
     Route: 048
     Dates: start: 20010101
  2. VFEND [Suspect]
     Indication: SYSTEMIC CANDIDA
     Dates: start: 20051118
  3. VFEND [Suspect]
     Indication: SYSTEMIC CANDIDA
     Dates: start: 20051228
  4. PAXIL [Concomitant]
  5. PLAVIX (CLIPIDOGREL SULFATE) [Concomitant]
  6. SYNTHROID [Concomitant]

REACTIONS (11)
  - CAROTID ARTERY OCCLUSION [None]
  - INFECTION [None]
  - INTERVERTEBRAL DISC DISORDER [None]
  - PAIN [None]
  - PNEUMONIA [None]
  - PROSTATE EXAMINATION ABNORMAL [None]
  - RENAL FAILURE [None]
  - RESPIRATORY FAILURE [None]
  - SYSTEMIC CANDIDA [None]
  - THERAPY NON-RESPONDER [None]
  - TRIPLE VESSEL BYPASS GRAFT [None]
